FAERS Safety Report 8609299-9 (Version None)
Quarter: 2012Q3

REPORT INFORMATION
  Report Type: 
  Country: None (occurrence: None)
  Receive Date: 20120821
  Receipt Date: 20120815
  Transmission Date: 20120928
  Serious: Yes (Other)
  Sender: FDA-Public Use
  Company Number: PHHY2012PL064142

PATIENT
  Age: 30 Year
  Sex: Female

DRUGS (5)
  1. BROMOCRIPTINE MESYLATE [Suspect]
     Indication: PROLACTINOMA
     Dosage: 7.5 MG, DAILY
  2. CLARITHROMYCIN [Interacting]
     Indication: RESPIRATORY TRACT INFECTION
  3. BROMOCRIPTINE MESYLATE [Interacting]
     Dosage: 15 MG, UNK
  4. KETOCONAZOLE [Interacting]
     Indication: VULVOVAGINAL MYCOTIC INFECTION
  5. BROMOCRIPTINE MESYLATE [Interacting]
     Dosage: 20 MG, UNK

REACTIONS (11)
  - DRUG LEVEL INCREASED [None]
  - POST-TRAUMATIC EPILEPSY [None]
  - INJURY [None]
  - MENSTRUAL DISORDER [None]
  - VOMITING [None]
  - CONSTIPATION [None]
  - DRUG INTERACTION [None]
  - HYPERPROLACTINAEMIA [None]
  - MUCOSAL DRYNESS [None]
  - ORTHOSTATIC HYPOTENSION [None]
  - PSYCHOMOTOR HYPERACTIVITY [None]
